FAERS Safety Report 21567976 (Version 1)
Quarter: 2022Q4

REPORT INFORMATION
  Report Type: Spontaneous
  Country: CN (occurrence: CN)
  Receive Date: 20221108
  Receipt Date: 20221108
  Transmission Date: 20230113
  Serious: Yes (Other)
  Sender: FDA-Public Use
  Company Number: CN-PFIZER INC-PV202200097670

PATIENT
  Age: 61 Year
  Sex: Male
  Weight: 66 kg

DRUGS (9)
  1. METHOTREXATE SODIUM [Suspect]
     Active Substance: METHOTREXATE SODIUM
     Indication: Acute promyelocytic leukaemia
     Dosage: NS 100ML + MTX 5ML + DEXAMETHASONE SODIUM PHOSPHATE INJECTION 2.5 MG, 2ML INTRATHECAL INJECTION
     Route: 037
     Dates: start: 20220805, end: 20220805
  2. CYTARABINE [Suspect]
     Active Substance: CYTARABINE
     Indication: Acute promyelocytic leukaemia
     Dosage: NS 10ML + CYTARABINE 0.5G, 1ML INTRATHECAL INJECTION
     Route: 037
     Dates: start: 20220805, end: 20220805
  3. CYTARABINE [Suspect]
     Active Substance: CYTARABINE
     Dosage: 0.18 G, 1X/DAY
     Route: 041
     Dates: start: 20220806, end: 20220811
  4. IDARUBICIN HYDROCHLORIDE [Suspect]
     Active Substance: IDARUBICIN HYDROCHLORIDE
     Indication: Acute promyelocytic leukaemia
     Dosage: 10 MG, 1X/DAY
     Route: 042
     Dates: start: 20220806, end: 20220808
  5. SODIUM CHLORIDE [Concomitant]
     Active Substance: SODIUM CHLORIDE
     Indication: Vehicle solution use
     Dosage: 100 ML, 1X/DAY
     Route: 037
     Dates: start: 20220805, end: 20220805
  6. SODIUM CHLORIDE [Concomitant]
     Active Substance: SODIUM CHLORIDE
     Dosage: 10 ML, 1X/DAY
     Route: 037
     Dates: start: 20220805, end: 20220805
  7. SODIUM CHLORIDE [Concomitant]
     Active Substance: SODIUM CHLORIDE
     Dosage: 10 ML, 1X/DAY
     Route: 042
     Dates: start: 20220806, end: 20220808
  8. SODIUM CHLORIDE [Concomitant]
     Active Substance: SODIUM CHLORIDE
     Indication: Vehicle solution use
     Dosage: 250 ML, 1X/DAY
     Route: 041
     Dates: start: 20220806, end: 20220811
  9. DEXAMETHASONE SODIUM PHOSPHATE [Concomitant]
     Active Substance: DEXAMETHASONE SODIUM PHOSPHATE
     Indication: Acute promyelocytic leukaemia
     Dosage: 2.5 MG, 1X/DAY
     Route: 037
     Dates: start: 20220805, end: 20220805

REACTIONS (1)
  - Cytopenia [Recovering/Resolving]

NARRATIVE: CASE EVENT DATE: 20220818
